FAERS Safety Report 19188672 (Version 5)
Quarter: 2021Q2

REPORT INFORMATION
  Report Type: Spontaneous
  Country: US (occurrence: US)
  Receive Date: 20210427
  Receipt Date: 20210602
  Transmission Date: 20210717
  Serious: Yes (Other)
  Sender: FDA-Public Use
  Company Number: US-ORGANON-O2104USA001405

PATIENT
  Age: 26 Year
  Sex: Female
  Weight: 65.3 kg

DRUGS (1)
  1. IMPLANON [Suspect]
     Active Substance: ETONOGESTREL
     Indication: CONTRACEPTION
     Dosage: 1 IMPLANT (68 MG), RIGHT UPPER ARM, EVERY 3 YEARS
     Route: 059
     Dates: start: 20150323, end: 20210520

REACTIONS (7)
  - Device issue [Recovered/Resolved]
  - Incorrect product administration duration [Unknown]
  - Surgery [Unknown]
  - Complication associated with device [Recovered/Resolved]
  - Complication of device removal [Recovered/Resolved]
  - Device dislocation [Recovered/Resolved]
  - General anaesthesia [Unknown]

NARRATIVE: CASE EVENT DATE: 20180323
